FAERS Safety Report 6375729-9 (Version None)
Quarter: 2009Q3

REPORT INFORMATION
  Report Type: 
  Country: None (occurrence: None)
  Receive Date: 20090924
  Receipt Date: 20090825
  Transmission Date: 20100115
  Serious: No
  Sender: FDA-Public Use
  Company Number: A0804088A

PATIENT
  Sex: Male

DRUGS (2)
  1. LAMICTAL [Suspect]
     Indication: DRUG USE FOR UNKNOWN INDICATION
     Dosage: 25MG UNKNOWN
     Route: 065
  2. UNKNOWN [Concomitant]

REACTIONS (1)
  - WHEEZING [None]
